FAERS Safety Report 8310562-X (Version None)
Quarter: 2012Q2

REPORT INFORMATION
  Report Type: 
  Country: None (occurrence: None)
  Receive Date: 20120425
  Receipt Date: 20120417
  Transmission Date: 20120825
  Serious: Yes (Hospitalization)
  Sender: FDA-Public Use
  Company Number: US-BAYER-2011-105701

PATIENT
  Age: 48 Year
  Sex: Female
  Weight: 68.027 kg

DRUGS (6)
  1. YASMIN [Suspect]
     Indication: CONTRACEPTION
     Dosage: UNK
     Dates: start: 20020101, end: 20060701
  2. DILANTIN [Concomitant]
     Indication: CONVULSION
  3. TYLENOL (CAPLET) [Concomitant]
  4. ATIVAN [Concomitant]
     Indication: CONVULSION
     Dosage: 2 MG, UNK
  5. KEPPRA [Concomitant]
     Indication: CONVULSION
  6. BACTRIM [Concomitant]
     Indication: URINARY TRACT INFECTION

REACTIONS (5)
  - PAIN [None]
  - GENERAL PHYSICAL HEALTH DETERIORATION [None]
  - EMOTIONAL DISTRESS [None]
  - ANXIETY [None]
  - CEREBRAL VENOUS THROMBOSIS [None]
